FAERS Safety Report 17842378 (Version 3)
Quarter: 2022Q2

REPORT INFORMATION
  Report Type: Report from Study
  Country: US (occurrence: US)
  Receive Date: 20200529
  Receipt Date: 20220525
  Transmission Date: 20220721
  Serious: Yes (Hospitalization)
  Sender: FDA-Public Use
  Company Number: US-LUNDBECK-DKLU3016329

PATIENT
  Age: 70 Year
  Sex: Male
  Weight: 90 kg

DRUGS (21)
  1. DROXIDOPA [Suspect]
     Active Substance: DROXIDOPA
     Indication: Orthostatic hypotension
     Route: 048
     Dates: start: 20200319, end: 20200320
  2. DROXIDOPA [Suspect]
     Active Substance: DROXIDOPA
     Route: 048
     Dates: start: 20200321, end: 20200322
  3. DROXIDOPA [Suspect]
     Active Substance: DROXIDOPA
     Route: 048
     Dates: start: 20200323, end: 20200324
  4. DROXIDOPA [Suspect]
     Active Substance: DROXIDOPA
     Route: 048
     Dates: start: 20200325, end: 20200326
  5. DROXIDOPA [Suspect]
     Active Substance: DROXIDOPA
     Route: 048
     Dates: start: 20200327, end: 20200328
  6. DROXIDOPA [Suspect]
     Active Substance: DROXIDOPA
     Route: 048
     Dates: start: 20200329, end: 20200401
  7. DROXIDOPA [Suspect]
     Active Substance: DROXIDOPA
     Route: 048
     Dates: start: 20200402
  8. DROXIDOPA [Suspect]
     Active Substance: DROXIDOPA
     Route: 048
  9. DROXIDOPA [Suspect]
     Active Substance: DROXIDOPA
     Route: 048
     Dates: start: 20200411, end: 20200528
  10. DROXIDOPA [Concomitant]
     Active Substance: DROXIDOPA
     Indication: Orthostatic hypotension
     Route: 048
     Dates: start: 20200120, end: 20200315
  11. COENZYME Q10 [Concomitant]
     Active Substance: DIETARY SUPPLEMENT\UBIDECARENONE
     Indication: Vitamin supplementation
     Route: 048
     Dates: start: 20191118
  12. KRILL OIL [Concomitant]
     Active Substance: DIETARY SUPPLEMENT\KRILL OIL
     Indication: Vitamin supplementation
     Route: 048
     Dates: start: 20191118
  13. METOPROLOL SUCCINATE [Concomitant]
     Active Substance: METOPROLOL SUCCINATE
     Indication: Supine hypertension
     Route: 048
     Dates: start: 20190207, end: 20200303
  14. ACETAMINOPHEN [Concomitant]
     Active Substance: ACETAMINOPHEN
     Indication: Arthritis
     Route: 048
     Dates: start: 20191118
  15. MELOXICAM [Concomitant]
     Active Substance: MELOXICAM
     Indication: Arthritis
     Route: 048
     Dates: start: 20191118
  16. ASPIRIN [Concomitant]
     Active Substance: ASPIRIN
     Indication: Coronary artery disease
     Route: 048
     Dates: start: 20160525
  17. ACETAMINOPHEN\HYDROCODONE [Concomitant]
     Active Substance: ACETAMINOPHEN\HYDROCODONE
     Indication: Arthritis
     Route: 048
     Dates: start: 20200218, end: 20200218
  18. VOLTAREN [Concomitant]
     Active Substance: DICLOFENAC SODIUM
     Indication: Arthritis
     Route: 061
     Dates: start: 20200218, end: 20200218
  19. TESTOSTERONE CYPIONATE [Concomitant]
     Active Substance: TESTOSTERONE CYPIONATE
     Indication: Androgen deficiency
     Route: 030
     Dates: start: 20200224
  20. CARDIZEM [Concomitant]
     Active Substance: DILTIAZEM HYDROCHLORIDE
     Indication: Hypertension
     Route: 048
     Dates: start: 20200303
  21. MIDODRINE [Concomitant]
     Active Substance: MIDODRINE
     Indication: Autonomic failure syndrome
     Route: 048
     Dates: start: 20191118, end: 20191220

REACTIONS (1)
  - Hypertensive encephalopathy [Recovered/Resolved]

NARRATIVE: CASE EVENT DATE: 20200408
